FAERS Safety Report 15954974 (Version 2)
Quarter: 2019Q1

REPORT INFORMATION
  Report Type: Report from Study
  Country: NO (occurrence: NO)
  Receive Date: 20190213
  Receipt Date: 20190227
  Transmission Date: 20190417
  Serious: Yes (Hospitalization)
  Sender: FDA-Public Use
  Company Number: NO-ROCHE-2261587

PATIENT
  Age: 66 Year
  Sex: Female
  Weight: 61.9 kg

DRUGS (12)
  1. VENETOCLAX. [Suspect]
     Active Substance: VENETOCLAX
     Indication: PLASMA CELL MYELOMA
     Dosage: ON DAYS 1-28 OF EACH 28-DAY CYCLE?MOST RECENT DOSE PRIOR TO EVENT ONSET ON 13/DEC/2018 (800 MG)
     Route: 048
     Dates: start: 20181114
  2. ARANESP [Concomitant]
     Active Substance: DARBEPOETIN ALFA
     Indication: ANAEMIA
     Route: 058
     Dates: start: 20181128, end: 20190109
  3. COBIMETINIB. [Suspect]
     Active Substance: COBIMETINIB
     Indication: PLASMA CELL MYELOMA
     Dosage: ON DAYS 1-21 OF EACH 28-DAY CYCLE ?MOST RECENT DOSE PRIOR TO EVENT ONSET ON 29/JAN/2019 (40 MG).
     Route: 048
     Dates: start: 20181114
  4. EURAX [Concomitant]
     Active Substance: CROTAMITON
     Indication: RASH
     Route: 065
     Dates: start: 20190109
  5. CYKLOKAPRON [Concomitant]
     Active Substance: TRANEXAMIC ACID
     Indication: HAEMORRHAGE
     Route: 048
     Dates: start: 20190123
  6. LEVAXIN [Concomitant]
     Active Substance: LEVOTHYROXINE SODIUM
     Indication: HYPOTHYROIDISM
     Route: 048
  7. SOMAC [Concomitant]
     Active Substance: PANTOPRAZOLE SODIUM
     Indication: PROPHYLAXIS
     Route: 048
     Dates: start: 20181209
  8. LONQUEX [Concomitant]
     Active Substance: LIPEGFILGRASTIM
     Indication: NEUTROPENIA
     Route: 058
     Dates: start: 20181227
  9. ZOFRAN [Concomitant]
     Active Substance: ONDANSETRON HYDROCHLORIDE
     Indication: PROPHYLAXIS OF NAUSEA AND VOMITING
     Route: 048
     Dates: start: 20181114
  10. NEUPOGEN [Concomitant]
     Active Substance: FILGRASTIM
     Indication: CYTOPENIA
     Route: 058
     Dates: start: 20181227
  11. LOCOID [Concomitant]
     Active Substance: HYDROCORTISONE BUTYRATE
     Indication: RASH
     Route: 058
     Dates: start: 20190109
  12. ZOMETA [Concomitant]
     Active Substance: ZOLEDRONIC ACID
     Indication: PROPHYLAXIS
     Route: 042
     Dates: start: 201701

REACTIONS (1)
  - Pyrexia [Not Recovered/Not Resolved]

NARRATIVE: CASE EVENT DATE: 20190204
